FAERS Safety Report 8593970-1 (Version None)
Quarter: 2012Q3

REPORT INFORMATION
  Report Type: 
  Country: None (occurrence: None)
  Receive Date: 20120814
  Receipt Date: 20120808
  Transmission Date: 20120928
  Serious: Yes (Other)
  Sender: FDA-Public Use
  Company Number: JP-VERTEX PHARMACEUTICALS INC.-AE-2012-007909

PATIENT
  Age: 58 Year
  Sex: Male

DRUGS (18)
  1. TELAVIC [Suspect]
     Route: 048
     Dates: start: 20120513, end: 20120513
  2. TELAVIC [Suspect]
     Route: 048
     Dates: start: 20120507, end: 20120512
  3. REBETOL [Concomitant]
     Indication: HEPATITIS C
     Route: 048
     Dates: start: 20120221, end: 20120312
  4. TELAVIC [Suspect]
     Indication: HEPATITIS C
     Route: 048
     Dates: start: 20120221, end: 20120325
  5. TELAVIC [Suspect]
     Route: 048
     Dates: start: 20120326, end: 20120326
  6. TELAVIC [Suspect]
     Route: 048
     Dates: start: 20120327, end: 20120411
  7. TELAVIC [Suspect]
     Route: 048
     Dates: start: 20120413, end: 20120503
  8. LOXOPROFEN [Concomitant]
     Route: 048
     Dates: start: 20120221, end: 20120318
  9. TELAVIC [Suspect]
     Route: 048
     Dates: start: 20120504, end: 20120506
  10. PEG-INTRON [Concomitant]
     Indication: HEPATITIS C
     Route: 058
     Dates: start: 20120221
  11. PEG-INTRON [Concomitant]
  12. LOSARTAN POTASSIUM [Concomitant]
     Route: 048
     Dates: start: 20120221, end: 20120320
  13. TELAVIC [Suspect]
     Route: 048
     Dates: start: 20120412, end: 20120412
  14. REBETOL [Concomitant]
     Route: 048
     Dates: start: 20120313, end: 20120325
  15. MUCOSTA [Concomitant]
     Route: 048
     Dates: start: 20120221, end: 20120318
  16. TELAVIC [Suspect]
     Route: 048
     Dates: start: 20120514, end: 20120514
  17. REBETOL [Concomitant]
     Route: 048
     Dates: start: 20120326, end: 20120507
  18. REBETOL [Concomitant]
     Route: 048
     Dates: start: 20120508

REACTIONS (3)
  - RENAL IMPAIRMENT [None]
  - WHITE BLOOD CELL COUNT DECREASED [None]
  - NEUTROPHIL PERCENTAGE DECREASED [None]
